FAERS Safety Report 6451238-3 (Version None)
Quarter: 2009Q4

REPORT INFORMATION
  Report Type: 
  Country: None (occurrence: None)
  Receive Date: 20091120
  Receipt Date: 20091120
  Transmission Date: 20100525
  Serious: Yes (Hospitalization)
  Sender: FDA-Public Use
  Company Number: None

PATIENT
  Sex: Female
  Weight: 88.5 kg

DRUGS (1)
  1. MEMANTINE HCL [Suspect]
     Dosage: 1070 MG

REACTIONS (7)
  - CONFUSIONAL STATE [None]
  - DYSARTHRIA [None]
  - DYSGRAPHIA [None]
  - GAIT DISTURBANCE [None]
  - HEADACHE [None]
  - MEMORY IMPAIRMENT [None]
  - TREMOR [None]
